FAERS Safety Report 21571246 (Version 1)
Quarter: 2022Q4

REPORT INFORMATION
  Report Type: Spontaneous
  Country: US (occurrence: US)
  Receive Date: 20221109
  Receipt Date: 20221109
  Transmission Date: 20230113
  Serious: No
  Sender: FDA-Public Use
  Company Number: US-IDORSIA-001808-2022-US

PATIENT
  Age: 68 Year
  Sex: Female

DRUGS (2)
  1. QUVIVIQ [Suspect]
     Active Substance: DARIDOREXANT
     Indication: Insomnia
     Dosage: 50 MG, QD
     Route: 048
  2. QUVIVIQ [Suspect]
     Active Substance: DARIDOREXANT
     Dosage: 25 MG
     Route: 048

REACTIONS (5)
  - Dizziness [Unknown]
  - Nightmare [Unknown]
  - Sleep terror [Unknown]
  - Sleep paralysis [Unknown]
  - Feeling abnormal [Unknown]
